FAERS Safety Report 23636332 (Version 1)
Quarter: 2024Q1

REPORT INFORMATION
  Report Type: Report from Study
  Country: US (occurrence: None)
  Receive Date: 20240315
  Receipt Date: 20240315
  Transmission Date: 20240410
  Serious: Yes (Hospitalization)
  Sender: FDA-Public Use
  Company Number: 2024A059906

PATIENT
  Sex: Female

DRUGS (1)
  1. FASENRA [Suspect]
     Active Substance: BENRALIZUMAB
     Indication: Idiopathic urticaria
     Route: 058

REACTIONS (5)
  - Respiratory tract infection [Unknown]
  - Rash [Unknown]
  - Urticaria [Unknown]
  - Anxiety [Unknown]
  - Inappropriate schedule of product administration [Unknown]
